FAERS Safety Report 15084446 (Version 1)
Quarter: 2018Q2

REPORT INFORMATION
  Report Type: Spontaneous
  Country: IT (occurrence: IT)
  Receive Date: 20180628
  Receipt Date: 20180628
  Transmission Date: 20180711
  Serious: Yes (Hospitalization)
  Sender: FDA-Public Use
  Company Number: IT-ASTRAZENECA-2018SE82312

PATIENT
  Age: 15 Year
  Sex: Male

DRUGS (9)
  1. DEXAMETHASONE. [Concomitant]
     Active Substance: DEXAMETHASONE
  2. MITOXANTRONE [Concomitant]
     Active Substance: MITOXANTRONE HYDROCHLORIDE
  3. ACICLOVIR [Concomitant]
     Active Substance: ACYCLOVIR
     Route: 048
  4. IDARUBICIN [Concomitant]
     Active Substance: IDARUBICIN
  5. BACTRIM [Concomitant]
     Active Substance: SULFAMETHOXAZOLE\TRIMETHOPRIM
     Dosage: 160 MG + 800 MG
     Route: 048
  6. ACETAZOLAMIDE. [Concomitant]
     Active Substance: ACETAZOLAMIDE
  7. MYCOSTATIN [Concomitant]
     Active Substance: NYSTATIN
  8. ITRACONAZOLE. [Concomitant]
     Active Substance: ITRACONAZOLE
     Route: 048
  9. ANTRA [Suspect]
     Active Substance: OMEPRAZOLE
     Indication: ACUTE MYELOID LEUKAEMIA
     Route: 048
     Dates: start: 20180522, end: 20180604

REACTIONS (4)
  - Pain in extremity [Recovered/Resolved]
  - Swelling [Recovered/Resolved]
  - Crepitations [Recovered/Resolved]
  - Joint effusion [Recovered/Resolved]

NARRATIVE: CASE EVENT DATE: 20180528
